FAERS Safety Report 23189525 (Version 1)
Quarter: 2023Q4

REPORT INFORMATION
  Report Type: Spontaneous
  Country: US (occurrence: US)
  Receive Date: 20231116
  Receipt Date: 20231116
  Transmission Date: 20240110
  Serious: No
  Sender: FDA-Public Use
  Company Number: US-ELI_LILLY_AND_COMPANY-US202311009149

PATIENT
  Sex: Male

DRUGS (1)
  1. MOUNJARO [Suspect]
     Active Substance: TIRZEPATIDE
     Indication: Insulin resistance
     Dosage: 15 MG, UNKNOWN
     Route: 065
     Dates: start: 2022

REACTIONS (3)
  - Burning sensation [Unknown]
  - Pollakiuria [Unknown]
  - Off label use [Unknown]
